FAERS Safety Report 22124322 (Version 1)
Quarter: 2023Q1

REPORT INFORMATION
  Report Type: Spontaneous
  Country: CN (occurrence: CN)
  Receive Date: 20230322
  Receipt Date: 20230322
  Transmission Date: 20230418
  Serious: Yes (Other)
  Sender: FDA-Public Use
  Company Number: CN-009507513-2303CHN006351

PATIENT
  Age: 43 Year
  Sex: Female
  Weight: 60 kg

DRUGS (2)
  1. CILASTATIN SODIUM\IMIPENEM [Suspect]
     Active Substance: CILASTATIN SODIUM\IMIPENEM
     Indication: Pneumonia
     Dosage: 1 G, TID
     Route: 041
     Dates: start: 20230119, end: 20230131
  2. SODIUM CHLORIDE [Concomitant]
     Active Substance: SODIUM CHLORIDE
     Dosage: 100 ML
     Route: 041

REACTIONS (4)
  - Loss of consciousness [Recovering/Resolving]
  - Seizure [Recovering/Resolving]
  - Trismus [Recovering/Resolving]
  - Foaming at mouth [Recovering/Resolving]

NARRATIVE: CASE EVENT DATE: 20230131
